FAERS Safety Report 14825676 (Version 2)
Quarter: 2018Q2

REPORT INFORMATION
  Report Type: Spontaneous
  Country: JP (occurrence: JP)
  Receive Date: 20180430
  Receipt Date: 20180502
  Transmission Date: 20180711
  Serious: Yes (Hospitalization)
  Sender: FDA-Public Use
  Company Number: JP-ROCHE-2113286

PATIENT
  Age: 25 Year
  Sex: Male

DRUGS (1)
  1. ACTEMRA [Suspect]
     Active Substance: TOCILIZUMAB
     Indication: TAKAYASU^S ARTERITIS
     Route: 058

REACTIONS (11)
  - Pulmonary artery stenosis [Unknown]
  - Oropharyngeal pain [Unknown]
  - Dysphagia [Recovering/Resolving]
  - Pulmonary infarction [Unknown]
  - Tonsillar hypertrophy [Recovering/Resolving]
  - Cough [Unknown]
  - Haemoptysis [Unknown]
  - Takayasu^s arteritis [Unknown]
  - Tonsillar erythema [Recovering/Resolving]
  - Tonsillolith [Unknown]
  - Pulmonary artery occlusion [Unknown]
